FAERS Safety Report 22643007 (Version 1)
Quarter: 2023Q2

REPORT INFORMATION
  Report Type: Spontaneous
  Country: FR (occurrence: FR)
  Receive Date: 20230627
  Receipt Date: 20230627
  Transmission Date: 20230722
  Serious: Yes (Hospitalization, Other)
  Sender: FDA-Public Use
  Company Number: None

PATIENT
  Age: 64 Year
  Sex: Female

DRUGS (7)
  1. RIFAMPIN [Suspect]
     Active Substance: RIFAMPIN
     Indication: Abscess
     Dosage: 4 DF, QD; 2 TABLETS 2X/D
     Route: 048
     Dates: start: 20230415, end: 20230513
  2. TRIMETHOPRIM [Suspect]
     Active Substance: TRIMETHOPRIM
     Indication: Abscess
     Dosage: 3 DF, QD; 1CP 3X/J
     Route: 048
     Dates: start: 20230415, end: 20230513
  3. CLODRONATE DISOD. [Concomitant]
     Indication: Osteoradionecrosis
     Dosage: UNK
     Dates: start: 20230324, end: 20230513
  4. CALCIUM CHLORIDE\POTASSIUM CHLORIDE\SODIUM ACETATE [Concomitant]
     Active Substance: CALCIUM CHLORIDE\POTASSIUM CHLORIDE\SODIUM ACETATE
     Indication: Osteoradionecrosis
     Dosage: UNK
     Dates: start: 20230324, end: 20230513
  5. PENTOXIFYLLINE [Concomitant]
     Active Substance: PENTOXIFYLLINE
     Indication: Osteoradionecrosis
     Dosage: UNK
     Dates: start: 20230324, end: 20230513
  6. DORZOLAMIDE HYDROCHLORIDE\TIMOLOL MALEATE [Concomitant]
     Active Substance: DORZOLAMIDE HYDROCHLORIDE\TIMOLOL MALEATE
     Indication: Glaucoma
     Dosage: 2 GTT DROPS, QD; 1 DROP MORNING AND EVENING IN THE LEFT EYE
     Route: 047
  7. LATANOPROST [Concomitant]
     Active Substance: LATANOPROST
     Indication: Glaucoma
     Dosage: 1 GTT DROPS, QD; 1 DROP IN THE EVENING IN THE LEFT EYE
     Route: 047

REACTIONS (3)
  - Hepatic cytolysis [Recovered/Resolved]
  - Cholestasis [Recovered/Resolved]
  - Eosinophilia [Recovered/Resolved]

NARRATIVE: CASE EVENT DATE: 20230501
